FAERS Safety Report 7005908-9 (Version None)
Quarter: 2010Q3

REPORT INFORMATION
  Report Type: 
  Country: None (occurrence: None)
  Receive Date: 20100921
  Receipt Date: 20100917
  Transmission Date: 20110219
  Serious: Yes (Death, Life-Threatening, Disabling, Other)
  Sender: FDA-Public Use
  Company Number: PHHO2010VE06355

PATIENT
  Sex: Female
  Weight: 55 kg

DRUGS (2)
  1. AFINITOR [Suspect]
     Indication: METASTATIC RENAL CELL CARCINOMA
     Dosage: 10 MG DAILY
     Route: 048
     Dates: start: 20100324, end: 20100407
  2. MEGACE [Concomitant]
     Dosage: UNK
     Dates: start: 20100227

REACTIONS (19)
  - ABDOMINAL PAIN [None]
  - COGNITIVE DISORDER [None]
  - CONFUSIONAL STATE [None]
  - DECREASED APPETITE [None]
  - DEHYDRATION [None]
  - DIARRHOEA [None]
  - DISORIENTATION [None]
  - FLANK PAIN [None]
  - FLUID INTAKE REDUCED [None]
  - HYPERCHOLESTEROLAEMIA [None]
  - HYPERTRIGLYCERIDAEMIA [None]
  - KUSSMAUL RESPIRATION [None]
  - LETHARGY [None]
  - NAUSEA [None]
  - PANCREATITIS [None]
  - RENAL FAILURE ACUTE [None]
  - SOMNOLENCE [None]
  - URINE OUTPUT DECREASED [None]
  - VOMITING [None]
